FAERS Safety Report 17809224 (Version 1)
Quarter: 2020Q2

REPORT INFORMATION
  Report Type: Spontaneous
  Country: IN (occurrence: IN)
  Receive Date: 20200520
  Receipt Date: 20200520
  Transmission Date: 20200714
  Serious: Yes (Disabling)
  Sender: FDA-Public Use
  Company Number: IN-SA-2018SA142203

PATIENT
  Age: 50 Year
  Sex: Male
  Weight: 74 kg

DRUGS (2)
  1. FLUTIVATE [Concomitant]
     Active Substance: FLUTICASONE PROPIONATE
     Indication: PHOTOSENSITIVITY REACTION
     Dosage: UNKNOWN, QD
     Route: 061
  2. ALLEGRA [Suspect]
     Active Substance: FEXOFENADINE HYDROCHLORIDE
     Indication: PHOTOSENSITIVITY REACTION
     Dosage: UNKNOWN, QD
     Route: 048
     Dates: start: 201709, end: 201712

REACTIONS (4)
  - Chest discomfort [Unknown]
  - Depression [Unknown]
  - Palpitations [Unknown]
  - Taste disorder [Recovered/Resolved]

NARRATIVE: CASE EVENT DATE: 201711
